FAERS Safety Report 12238795 (Version 1)
Quarter: 2016Q2

REPORT INFORMATION
  Report Type: Spontaneous
  Country: US (occurrence: None)
  Receive Date: 20160404
  Receipt Date: 20160404
  Transmission Date: 20160815
  Serious: Yes (Life-Threatening, Hospitalization, Other)
  Sender: FDA-Public Use
  Company Number: None

PATIENT
  Age: 45 Year
  Sex: Male
  Weight: 102.06 kg

DRUGS (1)
  1. VILAZODONE, UNKNOWN ALLERGAN [Suspect]
     Active Substance: VILAZODONE
     Indication: DEPRESSION
     Route: 048

REACTIONS (3)
  - Suicide attempt [None]
  - Anxiety [None]
  - Akathisia [None]
